FAERS Safety Report 9818980 (Version 1)
Quarter: 2014Q1

REPORT INFORMATION
  Report Type: Spontaneous
  Country: JP (occurrence: JP)
  Receive Date: 20140115
  Receipt Date: 20140115
  Transmission Date: 20141002
  Serious: Yes (Hospitalization, Other)
  Sender: FDA-Public Use
  Company Number: JP-ROXANE LABORATORIES, INC.-2014-RO-00029RO

PATIENT
  Age: 61 Year
  Sex: Male

DRUGS (2)
  1. CLOPIDOGREL [Suspect]
     Indication: BRAIN STEM INFARCTION
     Dosage: 75 MG
  2. ASPIRIN [Suspect]
     Indication: BRAIN STEM INFARCTION
     Dosage: 100 MG

REACTIONS (3)
  - Haemorrhagic cyst [Recovered/Resolved]
  - Parinaud syndrome [Unknown]
  - Hydrocephalus [Recovered/Resolved]
